FAERS Safety Report 13404446 (Version 1)
Quarter: 2017Q2

REPORT INFORMATION
  Report Type: Spontaneous
  Country: US (occurrence: US)
  Receive Date: 20170405
  Receipt Date: 20170405
  Transmission Date: 20170830
  Serious: No
  Sender: FDA-Public Use
  Company Number: US-PERRIGO-16US001863

PATIENT
  Age: 86 Year
  Sex: Female
  Weight: 81.63 kg

DRUGS (3)
  1. LOSARTAN. [Concomitant]
     Active Substance: LOSARTAN
     Indication: HYPERTENSION
     Dosage: UNK
     Route: 065
     Dates: start: 2014
  2. LEVOTHYROXINE. [Concomitant]
     Active Substance: LEVOTHYROXINE
     Indication: THYROIDECTOMY
     Dosage: UNK
     Route: 065
  3. ACETAMINOPHEN. [Suspect]
     Active Substance: ACETAMINOPHEN
     Indication: ARTHRALGIA
     Dosage: 650 MG, SINGLE
     Route: 048
     Dates: start: 20160218, end: 20160218

REACTIONS (4)
  - Chest pain [Recovered/Resolved]
  - Abdominal discomfort [Recovering/Resolving]
  - Pain in extremity [Recovering/Resolving]
  - Underdose [Recovered/Resolved]

NARRATIVE: CASE EVENT DATE: 20160218
